APPROVED DRUG PRODUCT: BUTOCONAZOLE NITRATE
Active Ingredient: BUTOCONAZOLE NITRATE
Strength: 2%
Dosage Form/Route: CREAM;VAGINAL
Application: N019881 | Product #001
Applicant: PADAGIS US LLC
Approved: Feb 7, 1997 | RLD: No | RS: No | Type: DISCN